FAERS Safety Report 11447190 (Version 2)
Quarter: 2015Q4

REPORT INFORMATION
  Report Type: Report from Study
  Country: JP (occurrence: JP)
  Receive Date: 20150902
  Receipt Date: 20151019
  Transmission Date: 20160304
  Serious: Yes (Death, Other)
  Sender: FDA-Public Use
  Company Number: JP-GILEAD-2015-0140108

PATIENT
  Age: 84 Year
  Sex: Female

DRUGS (16)
  1. TAKEPRON [Concomitant]
     Active Substance: LANSOPRAZOLE
     Dosage: 15 MG, UNK
     Dates: end: 20140317
  2. JUVELA N [Concomitant]
     Active Substance: TOCOPHERYL NICOTINATE, D-.ALPHA.
     Dosage: 200 MG, UNK
     Dates: end: 20140226
  3. MYONAL                             /01071502/ [Concomitant]
     Dosage: 100 MG, UNK
  4. AMBRISENTAN [Suspect]
     Active Substance: AMBRISENTAN
     Dosage: 5 MG, QD
     Route: 048
     Dates: start: 20130104, end: 20131210
  5. AMBRISENTAN [Suspect]
     Active Substance: AMBRISENTAN
     Dosage: 7.5 MG, QD
     Route: 048
     Dates: start: 20131211, end: 20140318
  6. ONEALFA [Concomitant]
     Active Substance: ALFACALCIDOL
     Dosage: 1 ?G, UNK
  7. WARFARIN [Concomitant]
     Active Substance: WARFARIN
     Dosage: 1.25 MG, UNK
     Dates: end: 20140317
  8. TAKEPRON [Concomitant]
     Active Substance: LANSOPRAZOLE
     Indication: PROPHYLAXIS AGAINST GASTROINTESTINAL ULCER
     Dosage: 15 MG, UNK
  9. ONEALFA [Concomitant]
     Active Substance: ALFACALCIDOL
     Dosage: 1 ?G, UNK
     Dates: end: 20140226
  10. WARFARIN [Concomitant]
     Active Substance: WARFARIN
     Indication: PULMONARY ARTERIAL HYPERTENSION
     Dosage: 1.25 MG, UNK
  11. DIART [Concomitant]
     Active Substance: AZOSEMIDE
     Indication: PULMONARY ARTERIAL HYPERTENSION
     Dosage: 30 MG, UNK
  12. JUVELA N [Concomitant]
     Active Substance: TOCOPHERYL NICOTINATE, D-.ALPHA.
     Dosage: 200 MG, UNK
  13. AMBRISENTAN [Suspect]
     Active Substance: AMBRISENTAN
     Indication: PULMONARY ARTERIAL HYPERTENSION
     Dosage: 2.5 MG, QD
     Route: 048
     Dates: start: 20121219
  14. DIART [Concomitant]
     Active Substance: AZOSEMIDE
     Dosage: 30 MG, UNK
     Dates: end: 20140317
  15. ALDACTONE A [Concomitant]
     Active Substance: SPIRONOLACTONE
     Indication: PULMONARY ARTERIAL HYPERTENSION
     Dosage: 25 MG, UNK
  16. ALDACTONE A [Concomitant]
     Active Substance: SPIRONOLACTONE
     Dosage: 25 MG, UNK
     Dates: end: 20140317

REACTIONS (2)
  - Right ventricular failure [Fatal]
  - Anaemia [Fatal]

NARRATIVE: CASE EVENT DATE: 20121225
